FAERS Safety Report 5912017-6 (Version None)
Quarter: 2008Q4

REPORT INFORMATION
  Report Type: 
  Country: None (occurrence: None)
  Receive Date: 20081008
  Receipt Date: 20080805
  Transmission Date: 20090506
  Serious: Yes (Other)
  Sender: FDA-Public Use
  Company Number: PHEH2008US06484

PATIENT

DRUGS (1)
  1. ZADITOR [Suspect]

REACTIONS (5)
  - CORNEAL INFECTION [None]
  - DRY EYE [None]
  - EYE SWELLING [None]
  - PHOTOPHOBIA [None]
  - VISUAL ACUITY REDUCED [None]
